FAERS Safety Report 5566048-9 (Version None)
Quarter: 2007Q4

REPORT INFORMATION
  Report Type: 
  Country: None (occurrence: None)
  Receive Date: 20071219
  Receipt Date: 20061114
  Transmission Date: 20080405
  Serious: No
  Sender: FDA-Public Use
  Company Number: US-KINGPHARMUSA00001-K200601482

PATIENT

DRUGS (1)
  1. APLISOL [Suspect]
     Dosage: .5 ML, SINGLE
     Route: 030
     Dates: start: 20061110, end: 20061110

REACTIONS (3)
  - INCORRECT ROUTE OF DRUG ADMINISTRATION [None]
  - INFLUENZA LIKE ILLNESS [None]
  - PAIN [None]
